FAERS Safety Report 16781292 (Version 1)
Quarter: 2019Q3

REPORT INFORMATION
  Report Type: Spontaneous
  Country: US (occurrence: US)
  Receive Date: 20190906
  Receipt Date: 20190906
  Transmission Date: 20191005
  Serious: No
  Sender: FDA-Public Use
  Company Number: US-SA-2019SA243635

PATIENT
  Sex: Female
  Weight: 97.05 kg

DRUGS (1)
  1. DUPIXENT [Suspect]
     Active Substance: DUPILUMAB
     Indication: ASTHMA
     Dosage: 300 MG, QOW
     Route: 058
     Dates: start: 201907

REACTIONS (7)
  - Back disorder [Unknown]
  - Fibromyalgia [Unknown]
  - Visual impairment [Unknown]
  - Gait disturbance [Unknown]
  - Arthropathy [Unknown]
  - Photophobia [Unknown]
  - Pain [Unknown]
